FAERS Safety Report 18343319 (Version 1)
Quarter: 2020Q4

REPORT INFORMATION
  Report Type: Spontaneous
  Country: CA (occurrence: CA)
  Receive Date: 20201005
  Receipt Date: 20201005
  Transmission Date: 20210113
  Serious: Yes (Other)
  Sender: FDA-Public Use
  Company Number: CA-ACCORD-203351

PATIENT
  Age: 75 Year
  Sex: Male

DRUGS (11)
  1. GOLD [Suspect]
     Active Substance: GOLD
     Indication: PRODUCT USED FOR UNKNOWN INDICATION
     Route: 065
  2. ARAVA [Suspect]
     Active Substance: LEFLUNOMIDE
     Indication: PRODUCT USED FOR UNKNOWN INDICATION
     Dosage: 1 EVERY 1 DAYS
     Route: 065
  3. LEFLUNOMIDE. [Suspect]
     Active Substance: LEFLUNOMIDE
     Indication: PRODUCT USED FOR UNKNOWN INDICATION
     Route: 065
  4. SULFASALAZINE. [Suspect]
     Active Substance: SULFASALAZINE
     Indication: RHEUMATOID ARTHRITIS
     Dosage: 2 EVERY 1 DAYS
     Route: 065
  5. RITUXIMAB. [Suspect]
     Active Substance: RITUXIMAB
     Indication: PRODUCT USED FOR UNKNOWN INDICATION
     Route: 042
  6. ENBREL [Suspect]
     Active Substance: ETANERCEPT
     Indication: RHEUMATOID ARTHRITIS
     Route: 058
  7. ORENCIA [Suspect]
     Active Substance: ABATACEPT
     Indication: PRODUCT USED FOR UNKNOWN INDICATION
     Route: 065
  8. LEFLUNOMIDE. [Suspect]
     Active Substance: LEFLUNOMIDE
     Indication: PRODUCT USED FOR UNKNOWN INDICATION
     Dosage: 1 EVERY 1 DAYS
     Route: 065
  9. XELJANZ [Concomitant]
     Active Substance: TOFACITINIB CITRATE
     Indication: PRODUCT USED FOR UNKNOWN INDICATION
     Route: 065
  10. METHOTREXATE. [Suspect]
     Active Substance: METHOTREXATE
     Indication: RHEUMATOID ARTHRITIS
     Dosage: 1 EVERY 1 WEEKS
     Route: 065
  11. METHOTREXATE. [Suspect]
     Active Substance: METHOTREXATE
     Indication: RHEUMATOID ARTHRITIS
     Dosage: 1 EVERY 1 DAYS
     Route: 067

REACTIONS (14)
  - Joint range of motion decreased [Unknown]
  - Mobility decreased [Unknown]
  - Osteoarthritis [Unknown]
  - Drug ineffective [Unknown]
  - Pain [Unknown]
  - Back pain [Unknown]
  - Renal failure [Unknown]
  - Feeling hot [Unknown]
  - Liver function test increased [Unknown]
  - Arthralgia [Unknown]
  - Musculoskeletal pain [Unknown]
  - Arthropathy [Unknown]
  - Hand deformity [Unknown]
  - Swelling [Unknown]
